FAERS Safety Report 4432125-9 (Version None)
Quarter: 2004Q3

REPORT INFORMATION
  Report Type: 
  Country: None (occurrence: None)
  Receive Date: 20040818
  Receipt Date: 20040805
  Transmission Date: 20050211
  Serious: Yes (Disabling)
  Sender: FDA-Public Use
  Company Number: 2004054409

PATIENT
  Sex: Female

DRUGS (3)
  1. NEURONTIN [Suspect]
     Indication: ILL-DEFINED DISORDER
     Dosage: 300 MG
  2. METAMUCIL (GLUCOSE MONHYDRATE, ISPAGHULA HUSK) [Concomitant]
  3. HERBAL NOS/VITAMINS NOS (HERBAL NOS, VITAMINS NOS) [Concomitant]

REACTIONS (5)
  - BACK PAIN [None]
  - GAIT DISTURBANCE [None]
  - NECK PAIN [None]
  - PAIN [None]
  - PAIN IN EXTREMITY [None]
